FAERS Safety Report 9784666 (Version 3)
Quarter: 2014Q1

REPORT INFORMATION
  Report Type: Report from Study
  Country: US (occurrence: US)
  Receive Date: 20131226
  Receipt Date: 20140127
  Transmission Date: 20141002
  Serious: Yes (Hospitalization)
  Sender: FDA-Public Use
  Company Number: US-ACTELION-A-NJ2013-92656

PATIENT
  Age: 73 Year
  Sex: Female

DRUGS (2)
  1. VELETRI [Suspect]
     Indication: PULMONARY ARTERIAL HYPERTENSION
     Dosage: 15 NG/KG, PER MIN
     Route: 042
     Dates: start: 20130923
  2. VELETRI [Suspect]
     Dosage: 13 UNK, UNK
     Route: 042

REACTIONS (3)
  - Urinary tract infection [Recovering/Resolving]
  - Klebsiella infection [Recovering/Resolving]
  - Nausea [Unknown]
